FAERS Safety Report 7928972-9 (Version None)
Quarter: 2011Q4

REPORT INFORMATION
  Report Type: 
  Country: None (occurrence: None)
  Receive Date: 20111118
  Receipt Date: 20111104
  Transmission Date: 20120403
  Serious: Yes (Other)
  Sender: FDA-Public Use
  Company Number: RU-WATSON-2011-19150

PATIENT
  Age: 16 Year
  Sex: Male

DRUGS (1)
  1. CABERGOLINE [Suspect]
     Indication: PROLACTINOMA
     Dosage: 0.5 MG, 1/WEEK

REACTIONS (3)
  - HEADACHE [None]
  - HEMIANOPIA HETERONYMOUS [None]
  - HAEMORRHAGE [None]
